FAERS Safety Report 20913949 (Version 2)
Quarter: 2022Q2

REPORT INFORMATION
  Report Type: Report from Study
  Country: EG (occurrence: EG)
  Receive Date: 20220604
  Receipt Date: 20220613
  Transmission Date: 20220721
  Serious: Yes (Hospitalization, Other)
  Sender: FDA-Public Use
  Company Number: EG-NOVARTISPH-NVSC2022EG128117

PATIENT
  Sex: Female

DRUGS (24)
  1. ENTRESTO [Suspect]
     Active Substance: SACUBITRIL\VALSARTAN
     Indication: Cardiac failure
     Dosage: 200 MG, BID
     Route: 048
     Dates: start: 2019, end: 2020
  2. ENTRESTO [Suspect]
     Active Substance: SACUBITRIL\VALSARTAN
     Dosage: 40 MG, QD
     Route: 065
     Dates: start: 2021
  3. VALSARTAN [Suspect]
     Active Substance: VALSARTAN
     Indication: Product used for unknown indication
     Dosage: 1 DOSAGE FORM, QD
     Route: 048
     Dates: start: 2020, end: 202112
  4. EXAMIDE [Concomitant]
     Indication: Diuretic therapy
     Dosage: 1 DOSAGE FORM, BID
     Route: 048
     Dates: start: 2019
  5. IVABRADINE [Concomitant]
     Active Substance: IVABRADINE
     Indication: Cardiac failure
     Dosage: 5 MG BID (7 MONTHS AGO-STOPPED AFTER 2 MONTHS)
     Route: 048
  6. IVABRADINE [Concomitant]
     Active Substance: IVABRADINE
     Dosage: 7.5 MG BID (5 MONTHS AGO)
     Route: 048
  7. ELIQUIS [Concomitant]
     Active Substance: APIXABAN
     Indication: Diuretic therapy
     Dosage: 5 MG QD (2 MONTHS AGO-STOPPED AFTER ONE MONTHS)
     Route: 048
  8. CONTROLOC [Concomitant]
     Active Substance: PANTOPRAZOLE SODIUM
     Indication: Prophylaxis
     Dosage: 40 MG, QD
     Route: 048
     Dates: start: 2019
  9. GINKGO [Concomitant]
     Active Substance: GINKGO
     Indication: Neuralgia
     Dosage: 40 MG, QD
     Route: 048
     Dates: start: 2018
  10. BENFOTIAMINE\CYANOCOBALAMIN\PYRIDOXINE HYDROCHLORIDE [Concomitant]
     Active Substance: BENFOTIAMINE\CYANOCOBALAMIN\PYRIDOXINE HYDROCHLORIDE
     Indication: Neuralgia
     Dosage: 1 DOSAGE FORM, QD
     Route: 048
     Dates: start: 2018
  11. CEREBROLYSIN [Concomitant]
     Active Substance: CEREBROLYSIN
     Indication: Neuralgia
     Dosage: 1 DOSAGE FORM, QD (FOR 4 MONTHS)
     Route: 065
     Dates: start: 2018
  12. PLAVIX [Concomitant]
     Active Substance: CLOPIDOGREL BISULFATE
     Indication: Haemophilia
     Dosage: 75 MG, QD
     Route: 048
     Dates: start: 2019
  13. ATORVASTATIN CALCIUM [Concomitant]
     Active Substance: ATORVASTATIN CALCIUM
     Indication: Blood cholesterol
     Dosage: 10 MG, QD
     Route: 048
     Dates: start: 2019, end: 2021
  14. CRESTOR [Concomitant]
     Active Substance: ROSUVASTATIN CALCIUM
     Indication: Blood cholesterol
     Dosage: 1 DOSAGE FORM, QD
     Route: 048
     Dates: start: 2021
  15. INSULIN NOS [Concomitant]
     Active Substance: INSULIN NOS
     Indication: Diabetes mellitus
     Dosage: 30 UNK
     Route: 065
     Dates: start: 2017
  16. INSULIN NOS [Concomitant]
     Active Substance: INSULIN NOS
     Dosage: 20 UNK
     Route: 065
  17. ACTRAPID [Concomitant]
     Active Substance: INSULIN HUMAN
     Indication: Diabetes mellitus
     Dosage: 10 MG
     Route: 065
     Dates: start: 2017
  18. GLICLAZIDE [Concomitant]
     Active Substance: GLICLAZIDE
     Indication: Diabetes mellitus
     Dosage: 1 DOSAGE FORM, QD
     Route: 065
     Dates: end: 2017
  19. TARGAN [Concomitant]
     Indication: Cardiac failure
     Dosage: 40 MG, QD
     Route: 048
     Dates: start: 2020, end: 2021
  20. BISOPROLOL FUMARATE [Concomitant]
     Active Substance: BISOPROLOL FUMARATE
     Indication: Hypertension
     Dosage: 5 MG, QD
     Route: 048
     Dates: start: 202204
  21. NEBIVOLOL HYDROCHLORIDE [Concomitant]
     Active Substance: NEBIVOLOL HYDROCHLORIDE
     Indication: Hypertension
     Dosage: 2.5 MG (HALF TABLET TWICE DAILY)
     Route: 048
     Dates: start: 2019, end: 202112
  22. LASIX [Concomitant]
     Active Substance: FUROSEMIDE
     Indication: Diuretic therapy
     Dosage: 40 MG, QD
     Route: 048
     Dates: start: 202106, end: 202112
  23. BETAHISTINE [Concomitant]
     Active Substance: BETAHISTINE
     Indication: Vertigo
     Dosage: 24 MG (STOPPED AFTER TWO MONTHS AGO)
     Route: 048
     Dates: start: 202201
  24. FUROSEMIDE\SPIRONOLACTONE [Concomitant]
     Active Substance: FUROSEMIDE\SPIRONOLACTONE
     Indication: Diuretic therapy
     Dosage: 1 DOSAGE FORM, QD
     Route: 048
     Dates: start: 202106, end: 202112

REACTIONS (12)
  - Pulmonary oedema [Recovering/Resolving]
  - Urinary retention [Not Recovered/Not Resolved]
  - Myocardial necrosis marker increased [Unknown]
  - Decreased appetite [Not Recovered/Not Resolved]
  - Cystitis noninfective [Not Recovered/Not Resolved]
  - Dizziness [Not Recovered/Not Resolved]
  - Hyperhidrosis [Not Recovered/Not Resolved]
  - Aphasia [Not Recovered/Not Resolved]
  - Hypotension [Not Recovered/Not Resolved]
  - Diarrhoea [Recovering/Resolving]
  - Tremor [Not Recovered/Not Resolved]
  - Wrong technique in product usage process [Unknown]

NARRATIVE: CASE EVENT DATE: 20190101
